FAERS Safety Report 9376894 (Version 2)
Quarter: 2013Q3

REPORT INFORMATION
  Report Type: Report from Study
  Country: US (occurrence: US)
  Receive Date: 20130701
  Receipt Date: 20130731
  Transmission Date: 20140515
  Serious: Yes (Hospitalization, Other)
  Sender: FDA-Public Use
  Company Number: US-JNJFOC-20130616868

PATIENT
  Age: 40 Year
  Sex: Female
  Weight: 53.52 kg

DRUGS (9)
  1. REMICADE [Suspect]
     Indication: CROHN^S DISEASE
     Dosage: START: 2006 OR 2007
     Route: 042
     Dates: end: 201211
  2. REMICADE [Suspect]
     Indication: CROHN^S DISEASE
     Route: 042
     Dates: start: 20130314
  3. REMICADE [Suspect]
     Indication: CROHN^S DISEASE
     Route: 042
     Dates: start: 20130228
  4. LIALDA [Concomitant]
     Route: 048
  5. 6-MERCAPTOPURINE [Concomitant]
     Route: 048
  6. CALCIUM [Concomitant]
     Route: 048
  7. MULTIVITAMINS [Concomitant]
     Route: 048
  8. PREVACID [Concomitant]
     Route: 048
  9. CYANOCOBALAMIN [Concomitant]
     Route: 050

REACTIONS (8)
  - Intestinal obstruction [Recovering/Resolving]
  - Atelectasis [Unknown]
  - Fistula [Recovering/Resolving]
  - Crohn^s disease [Unknown]
  - Hepatic steatosis [Unknown]
  - Pleural effusion [Unknown]
  - Post procedural infection [Unknown]
  - Drug ineffective [Unknown]
